FAERS Safety Report 4425680-6 (Version None)
Quarter: 2004Q3

REPORT INFORMATION
  Report Type: 
  Country: None (occurrence: None)
  Receive Date: 20040716
  Receipt Date: 20030910
  Transmission Date: 20050211
  Serious: Yes (Other)
  Sender: FDA-Public Use
  Company Number: 202406

PATIENT
  Sex: Male

DRUGS (1)
  1. TNKASE [Suspect]
     Indication: ACUTE MYOCARDIAL INFARCTION
     Dosage: SINGLE, IV BOLUS
     Route: 040
     Dates: start: 20030909, end: 20030909

REACTIONS (1)
  - HAEMORRHAGE INTRACRANIAL [None]
